FAERS Safety Report 19987390 (Version 2)
Quarter: 2023Q1

REPORT INFORMATION
  Report Type: Spontaneous
  Country: CA (occurrence: CA)
  Receive Date: 20211022
  Receipt Date: 20230317
  Transmission Date: 20230418
  Serious: Yes (Hospitalization)
  Sender: FDA-Public Use
  Company Number: CA-NAPPMUNDI-GBR-2021-0091539

PATIENT
  Age: 46 Year
  Sex: Female

DRUGS (5)
  1. MORPHINE SULFATE [Suspect]
     Active Substance: MORPHINE SULFATE
     Indication: Product used for unknown indication
     Dosage: UNK
     Route: 065
  2. COSENTYX [Suspect]
     Active Substance: SECUKINUMAB
     Indication: Psoriatic arthropathy
     Dosage: 300 MG, MONTHLY
     Route: 058
  3. COSENTYX [Suspect]
     Active Substance: SECUKINUMAB
     Indication: Psoriasis
  4. METHOTREXATE [Concomitant]
     Active Substance: METHOTREXATE
     Indication: Product used for unknown indication
     Dosage: 1 MILLIGRAM, WEEKLY
     Route: 065
  5. CYCLOSPORINE [Concomitant]
     Active Substance: CYCLOSPORINE
     Indication: Product used for unknown indication
     Dosage: UNK
     Route: 048

REACTIONS (16)
  - Arthritis [Unknown]
  - Accident [Unknown]
  - Drug hypersensitivity [Unknown]
  - Drug ineffective [Unknown]
  - Fatigue [Unknown]
  - Nasal congestion [Unknown]
  - Nasopharyngitis [Unknown]
  - Nausea [Unknown]
  - Oropharyngeal pain [Unknown]
  - Pain [Unknown]
  - Photosensitivity reaction [Unknown]
  - Skin plaque [Unknown]
  - Psoriasis [Unknown]
  - Wrong technique in product usage process [Unknown]
  - COVID-19 [Unknown]
  - Scab [Unknown]
